FAERS Safety Report 12794252 (Version 2)
Quarter: 2017Q2

REPORT INFORMATION
  Report Type: Spontaneous
  Country: US (occurrence: US)
  Receive Date: 20160929
  Receipt Date: 20170426
  Transmission Date: 20170830
  Serious: Yes (Other)
  Sender: FDA-Public Use
  Company Number: US-JNJFOC-20160903005

PATIENT
  Sex: Male

DRUGS (10)
  1. RISPERDAL [Suspect]
     Active Substance: RISPERIDONE
     Indication: MUSCLE RIGIDITY
     Dosage: 0.5 MG - 1 MG
     Route: 048
     Dates: start: 2005, end: 2009
  2. RISPERIDONE. [Suspect]
     Active Substance: RISPERIDONE
     Indication: AUTISM SPECTRUM DISORDER
     Dosage: QAM
     Route: 048
     Dates: end: 2012
  3. CONCERTA [Suspect]
     Active Substance: METHYLPHENIDATE HYDROCHLORIDE
     Indication: ATTENTION DEFICIT/HYPERACTIVITY DISORDER
     Dosage: QAM
     Route: 048
  4. RISPERIDONE. [Suspect]
     Active Substance: RISPERIDONE
     Indication: AGGRESSION
     Dosage: QAM
     Route: 048
     Dates: end: 2012
  5. RISPERIDONE. [Suspect]
     Active Substance: RISPERIDONE
     Indication: AUTISM SPECTRUM DISORDER
     Route: 048
     Dates: start: 201006
  6. RISPERDAL [Suspect]
     Active Substance: RISPERIDONE
     Indication: ATTENTION DEFICIT/HYPERACTIVITY DISORDER
     Dosage: 0.5 MG - 1 MG
     Route: 048
     Dates: start: 2005, end: 2009
  7. RISPERIDONE. [Suspect]
     Active Substance: RISPERIDONE
     Indication: AGGRESSION
     Route: 048
     Dates: start: 201006
  8. RISPERDAL [Suspect]
     Active Substance: RISPERIDONE
     Indication: ABNORMAL BEHAVIOUR
     Dosage: 0.5 MG - 1 MG
     Route: 048
     Dates: start: 2005, end: 2009
  9. RISPERIDONE. [Suspect]
     Active Substance: RISPERIDONE
     Indication: AGGRESSION
     Route: 048
     Dates: start: 201210, end: 2013
  10. RISPERIDONE. [Suspect]
     Active Substance: RISPERIDONE
     Indication: AUTISM SPECTRUM DISORDER
     Route: 048
     Dates: start: 201210, end: 2013

REACTIONS (3)
  - Obesity [Unknown]
  - Suicidal ideation [Unknown]
  - Gynaecomastia [Unknown]

NARRATIVE: CASE EVENT DATE: 2006
